FAERS Safety Report 15253277 (Version 1)
Quarter: 2018Q3

REPORT INFORMATION
  Report Type: Spontaneous
  Country: US (occurrence: US)
  Receive Date: 20180807
  Receipt Date: 20180807
  Transmission Date: 20181010
  Serious: Yes (Other)
  Sender: FDA-Public Use
  Company Number: PHHY2016US002413

PATIENT
  Age: 56 Year
  Sex: Female

DRUGS (4)
  1. RIBAVIRIN. [Suspect]
     Active Substance: RIBAVIRIN
     Indication: ANTIVIRAL TREATMENT
     Dosage: 200 MG, BID
     Route: 065
  2. SOFOSBUVIR [Concomitant]
     Active Substance: SOFOSBUVIR
     Indication: ANTIVIRAL TREATMENT
     Dosage: 400 MG, QD
     Route: 065
  3. EPOETIN [Concomitant]
     Active Substance: ERYTHROPOIETIN
     Indication: PRODUCT USED FOR UNKNOWN INDICATION
     Route: 065
  4. RIBAVIRIN. [Suspect]
     Active Substance: RIBAVIRIN
     Dosage: 200 MG, QD
     Route: 065

REACTIONS (3)
  - Anaemia [Unknown]
  - Acute kidney injury [Recovering/Resolving]
  - Lupus nephritis [Unknown]
